FAERS Safety Report 4683702-1 (Version None)
Quarter: 2005Q2

REPORT INFORMATION
  Report Type: 
  Country: None (occurrence: None)
  Receive Date: 20050607
  Receipt Date: 20050527
  Transmission Date: 20051028
  Serious: Yes (Hospitalization, Other)
  Sender: FDA-Public Use
  Company Number: PHBS2005JP07706

PATIENT
  Age: 56 Year
  Sex: Male

DRUGS (2)
  1. SANDOSTATIN LAR [Suspect]
     Indication: ACROMEGALY
     Dosage: 20 MG/DAY
     Route: 030
     Dates: start: 20050427
  2. SANDOSTATIN [Suspect]
     Indication: ACROMEGALY
     Route: 058

REACTIONS (5)
  - DIZZINESS [None]
  - FAECES DISCOLOURED [None]
  - GRIP STRENGTH DECREASED [None]
  - POLYNEUROPATHY [None]
  - VERTIGO [None]
